FAERS Safety Report 5141206-6 (Version None)
Quarter: 2006Q4

REPORT INFORMATION
  Report Type: 
  Country: None (occurrence: None)
  Receive Date: 20061026
  Receipt Date: 20060628
  Transmission Date: 20070319
  Serious: Yes (Other)
  Sender: FDA-Public Use
  Company Number: 2006035812

PATIENT
  Age: 71 Year
  Sex: Female
  Weight: 77.5651 kg

DRUGS (1)
  1. BEXTRA [Suspect]
     Dosage: 10 MG (10 MG, 1 IN 1 D)
     Dates: start: 20020703, end: 20020713

REACTIONS (1)
  - STEVENS-JOHNSON SYNDROME [None]
